FAERS Safety Report 19413756 (Version 1)
Quarter: 2021Q2

REPORT INFORMATION
  Report Type: Report from Study
  Country: US (occurrence: US)
  Receive Date: 20210614
  Receipt Date: 20210614
  Transmission Date: 20210717
  Serious: Yes (Death, Hospitalization)
  Sender: FDA-Public Use
  Company Number: US-EXELIXIS-XL18421041291

PATIENT

DRUGS (2)
  1. XL184 [Suspect]
     Active Substance: CABOZANTINIB
     Indication: EXTRASKELETAL MYXOID CHONDROSARCOMA
     Dosage: 40 MG, QD
     Route: 048
     Dates: start: 20210519, end: 20210607
  2. TEMOZOLOMIDE. [Suspect]
     Active Substance: TEMOZOLOMIDE
     Indication: EXTRASKELETAL MYXOID CHONDROSARCOMA
     Dosage: 385 MG (DAYS 1?5)
     Route: 048
     Dates: start: 20210519, end: 20210523

REACTIONS (1)
  - Myocardial infarction [Fatal]

NARRATIVE: CASE EVENT DATE: 20210607
